FAERS Safety Report 8577509-2 (Version None)
Quarter: 2012Q3

REPORT INFORMATION
  Report Type: 
  Country: None (occurrence: None)
  Receive Date: 20120807
  Receipt Date: 20120801
  Transmission Date: 20120928
  Serious: Yes (Other)
  Sender: FDA-Public Use
  Company Number: CA-ROCHE-1096591

PATIENT
  Sex: Male
  Weight: 70.3 kg

DRUGS (10)
  1. MORPHINE SULFATE [Concomitant]
  2. OMEPRAZOLE [Concomitant]
  3. NABUMETONE [Concomitant]
  4. PREDNISONE [Concomitant]
  5. EMTEC-30 [Concomitant]
  6. METHOTREXATE [Concomitant]
  7. MABTHERA [Suspect]
     Indication: RHEUMATOID ARTHRITIS
     Dosage: DAY 1 AND DAY 15
     Route: 042
     Dates: start: 20100712
  8. CALCIUM [Concomitant]
  9. ALENDRONATE SODIUM [Concomitant]
  10. AZATHIOPRINE SODIUM [Concomitant]

REACTIONS (4)
  - CHEST PAIN [None]
  - CONSTIPATION [None]
  - PAIN [None]
  - BACK PAIN [None]
